FAERS Safety Report 4356066-0 (Version None)
Quarter: 2004Q2

REPORT INFORMATION
  Report Type: 
  Country: None (occurrence: None)
  Receive Date: 20040429
  Receipt Date: 20030324
  Transmission Date: 20050107
  Serious: Yes (Other)
  Sender: FDA-Public Use
  Company Number: 1670521A

PATIENT
  Age: 88 Year
  Sex: Female

DRUGS (2)
  1. IMODIUM A-D [Suspect]
     Indication: DIARRHOEA
     Dosage: 2 MG, QID, PO
     Route: 048
     Dates: start: 20030318, end: 20030319
  2. THYROID TAB [Concomitant]

REACTIONS (1)
  - THROAT IRRITATION [None]
